FAERS Safety Report 5174888-3 (Version None)
Quarter: 2006Q4

REPORT INFORMATION
  Report Type: 
  Country: None (occurrence: None)
  Receive Date: 20061214
  Receipt Date: 20060607
  Transmission Date: 20070319
  Serious: No
  Sender: FDA-Public Use
  Company Number: US-AMGEN-KDL182192

PATIENT
  Sex: Female

DRUGS (2)
  1. ENBREL [Suspect]
     Indication: RHEUMATOID ARTHRITIS
     Dates: start: 20040503
  2. METHOTREXATE [Concomitant]

REACTIONS (3)
  - GINGIVAL PAIN [None]
  - ORAL PAIN [None]
  - TOOTHACHE [None]
